FAERS Safety Report 6234533-2 (Version None)
Quarter: 2009Q2

REPORT INFORMATION
  Report Type: 
  Country: None (occurrence: None)
  Receive Date: 20090618
  Receipt Date: 20090326
  Transmission Date: 20091009
  Serious: No
  Sender: FDA-Public Use
  Company Number: US-BRISTOL-MYERS SQUIBB COMPANY-14564363

PATIENT

DRUGS (1)
  1. SINEMET [Suspect]

REACTIONS (1)
  - HEART RATE DECREASED [None]
